FAERS Safety Report 14431288 (Version 1)
Quarter: 2018Q1

REPORT INFORMATION
  Report Type: Spontaneous
  Country: US (occurrence: US)
  Receive Date: 20180124
  Receipt Date: 20180124
  Transmission Date: 20180509
  Serious: No
  Sender: FDA-Public Use
  Company Number: US-PFIZER INC-2018026298

PATIENT
  Sex: Female
  Weight: 79.38 kg

DRUGS (6)
  1. ETODOLAC. [Concomitant]
     Active Substance: ETODOLAC
     Indication: OSTEONECROSIS
     Dosage: 600MG
  2. POTASSIUM CHLORIDE. [Concomitant]
     Active Substance: POTASSIUM CHLORIDE
     Indication: SWELLING
     Dosage: 10 MEQ, AS NEEDED (10MEQ TABLET ONE TIME A WEEK OR ONCE IN A WHILE AS NEEDED)
     Dates: start: 20170912
  3. FLEXERIL [Concomitant]
     Active Substance: CYCLOBENZAPRINE HYDROCHLORIDE
     Indication: MUSCLE RELAXANT THERAPY
     Dosage: 10MG CAN TAKE UP 3 TIMES A DAY BUT USUALLY TAKES AT NIGHT
  4. LYRICA [Suspect]
     Active Substance: PREGABALIN
     Dosage: 150 MG, 3X/DAY
     Route: 048
  5. LYRICA [Suspect]
     Active Substance: PREGABALIN
     Indication: VTH NERVE INJURY
     Dosage: 50 MG, UNK
  6. LYRICA [Suspect]
     Active Substance: PREGABALIN
     Dosage: 100 MG, UNK

REACTIONS (5)
  - Gait disturbance [Recovered/Resolved]
  - Dry mouth [Recovering/Resolving]
  - Asthenia [Recovered/Resolved]
  - Fall [Recovered/Resolved]
  - Dysstasia [Recovered/Resolved]
